FAERS Safety Report 15413434 (Version 2)
Quarter: 2018Q4

REPORT INFORMATION
  Report Type: Spontaneous
  Country: CH (occurrence: CH)
  Receive Date: 20180921
  Receipt Date: 20181112
  Transmission Date: 20190204
  Serious: Yes (Other)
  Sender: FDA-Public Use
  Company Number: CH-ROCHE-2182565

PATIENT
  Age: 61 Year
  Sex: Male
  Weight: 81 kg

DRUGS (5)
  1. PEGASYS [Suspect]
     Active Substance: PEGINTERFERON ALFA-2A
     Indication: CHRONIC HEPATITIS C
     Route: 058
     Dates: start: 20020417, end: 20021017
  2. MADOPAR [Concomitant]
     Active Substance: BENSERAZIDE HYDROCHLORIDE\LEVODOPA
  3. EPCLUSA [Suspect]
     Active Substance: SOFOSBUVIR\VELPATASVIR
     Indication: CHRONIC HEPATITIS C
     Route: 048
     Dates: start: 20170510, end: 20170803
  4. RIBAVIRIN. [Suspect]
     Active Substance: RIBAVIRIN
     Indication: CHRONIC HEPATITIS C
     Route: 048
     Dates: start: 20020417, end: 20021017
  5. CANDESARTAN. [Concomitant]
     Active Substance: CANDESARTAN

REACTIONS (3)
  - Drug ineffective [Unknown]
  - Hepatitis C [Unknown]
  - Viral mutation identified [Not Recovered/Not Resolved]
